FAERS Safety Report 6183757-1 (Version None)
Quarter: 2009Q2

REPORT INFORMATION
  Report Type: 
  Country: None (occurrence: None)
  Receive Date: 20090508
  Receipt Date: 20090330
  Transmission Date: 20091009
  Serious: No
  Sender: FDA-Public Use
  Company Number: A0758733A

PATIENT
  Age: 60 Year
  Sex: Male

DRUGS (3)
  1. ALTABAX [Suspect]
     Indication: OPEN WOUND
     Dosage: 1APP TWICE PER DAY
     Route: 061
     Dates: start: 20081124, end: 20081127
  2. DIASMINE [Concomitant]
  3. LORTAB [Concomitant]
     Indication: PAIN
     Route: 048

REACTIONS (3)
  - ERYTHEMA [None]
  - PRURITUS [None]
  - SKIN IRRITATION [None]
